FAERS Safety Report 23043714 (Version 1)
Quarter: 2023Q4

REPORT INFORMATION
  Report Type: Spontaneous
  Country: US (occurrence: US)
  Receive Date: 20231009
  Receipt Date: 20231009
  Transmission Date: 20240109
  Serious: No
  Sender: FDA-Public Use
  Company Number: US-AMGEN-USASP2023174823

PATIENT
  Age: 65 Year
  Sex: Female

DRUGS (4)
  1. REPATHA [Suspect]
     Active Substance: EVOLOCUMAB
     Indication: Blood cholesterol increased
     Dosage: 140 MILLIGRAM, Q4WK
     Route: 058
  2. OZEMPIC [Concomitant]
     Active Substance: SEMAGLUTIDE
     Route: 058
  3. VICTOZA [Concomitant]
     Active Substance: LIRAGLUTIDE
  4. MOUNJARO [Concomitant]
     Active Substance: TIRZEPATIDE

REACTIONS (7)
  - Adverse reaction [Unknown]
  - Urinary tract infection [Not Recovered/Not Resolved]
  - Injection site haemorrhage [Unknown]
  - Device difficult to use [Unknown]
  - Product communication issue [Unknown]
  - Incorrect disposal of product [Unknown]
  - Off label use [Unknown]

NARRATIVE: CASE EVENT DATE: 20230101
